FAERS Safety Report 11400179 (Version 1)
Quarter: 2015Q3

REPORT INFORMATION
  Report Type: Spontaneous
  Country: US (occurrence: US)
  Receive Date: 20150820
  Receipt Date: 20150820
  Transmission Date: 20151125
  Serious: No
  Sender: FDA-Public Use
  Company Number: US-ASTELLAS-2014US019282

PATIENT
  Age: 33 Year
  Sex: Male

DRUGS (2)
  1. AMBISOME [Suspect]
     Active Substance: AMPHOTERICIN B
     Indication: ASYMPTOMATIC HIV INFECTION
  2. AMBISOME [Suspect]
     Active Substance: AMPHOTERICIN B
     Indication: HIV INFECTION
     Route: 065
     Dates: start: 20141006, end: 20141006

REACTIONS (1)
  - Off label use [Unknown]

NARRATIVE: CASE EVENT DATE: 20141006
